FAERS Safety Report 18063371 (Version 1)
Quarter: 2020Q3

REPORT INFORMATION
  Report Type: Spontaneous
  Country: GB (occurrence: GB)
  Receive Date: 20200724
  Receipt Date: 20200724
  Transmission Date: 20201103
  Serious: Yes (Other)
  Sender: FDA-Public Use
  Company Number: GB-TEVA-2020-GB-1804018

PATIENT
  Age: 53 Year
  Sex: Female
  Weight: 80.28 kg

DRUGS (4)
  1. COLECALCIFEROL [Concomitant]
     Active Substance: CHOLECALCIFEROL
  2. LEVOTHYROXINE. [Concomitant]
     Active Substance: LEVOTHYROXINE
  3. CLOPIDOGREL [Suspect]
     Active Substance: CLOPIDOGREL BISULFATE
     Indication: ANTIPHOSPHOLIPID SYNDROME
     Dosage: 75MG
     Route: 048
     Dates: start: 20200610, end: 20200630
  4. ACETYLSALICYLIC ACID [Concomitant]
     Active Substance: ASPIRIN

REACTIONS (5)
  - Somnolence [Recovering/Resolving]
  - Dizziness [Recovered/Resolved]
  - Myalgia [Recovering/Resolving]
  - Fatigue [Recovering/Resolving]
  - Headache [Recovered/Resolved]

NARRATIVE: CASE EVENT DATE: 20200610
